FAERS Safety Report 5528561-X (Version None)
Quarter: 2007Q4

REPORT INFORMATION
  Report Type: 
  Country: None (occurrence: None)
  Receive Date: 20071123
  Receipt Date: 20071109
  Transmission Date: 20080405
  Serious: Yes (Other)
  Sender: FDA-Public Use
  Company Number: 100#01#2007-04663

PATIENT
  Age: 60 Year
  Sex: Male

DRUGS (11)
  1. DIUVER(TORASEMIDE) (TORASEMIDE) [Suspect]
     Indication: CARDIAC FAILURE CONGESTIVE
     Dosage: 10MG, ONCE DAILY ORAL
     Route: 048
     Dates: start: 20070815, end: 20070816
  2. ENALAPRIL MALEATE [Suspect]
     Indication: CARDIAC FAILURE CONGESTIVE
     Dosage: 40 MG DAILY ORAL
     Route: 048
     Dates: start: 20070811
  3. ENALAPRIL MALEATE [Suspect]
     Indication: HYPERTENSION
     Dosage: 40 MG DAILY ORAL
     Route: 048
     Dates: start: 20070811
  4. HYDROCHLOROTHIAZIDE [Suspect]
     Indication: CARDIAC FAILURE CONGESTIVE
     Dosage: 25MG DAILY ORAL
     Route: 048
     Dates: start: 20070814
  5. HYDROCHLOROTHIAZIDE [Suspect]
     Indication: HYPERTENSION
     Dosage: 25MG DAILY ORAL
     Route: 048
     Dates: start: 20070814
  6. SPIRONOLACTONE [Suspect]
     Indication: CARDIAC FAILURE CONGESTIVE
     Dosage: 25MG DAILY ORAL
     Route: 048
     Dates: start: 20070809
  7. SPIRONOLACTONE [Suspect]
     Indication: HYPERTENSION
     Dosage: 25MG DAILY ORAL
     Route: 048
     Dates: start: 20070809
  8. AMLODIPINE [Suspect]
     Indication: HYPERTENSION
     Dosage: 10MG DAILY ORAL
     Route: 048
     Dates: start: 20070810
  9. DIGOXIN [Suspect]
     Indication: CARDIAC FAILURE CONGESTIVE
     Dosage: 0.25MG DAILY ORAL
     Route: 048
     Dates: start: 20070809
  10. METOPROLOL SUCCINATE [Suspect]
     Indication: ATRIAL FLUTTER
     Dosage: 100MG DAILY ORAL
     Route: 048
     Dates: start: 20070810
  11. ACETYLSALICYLIC ACID SRT [Suspect]
     Indication: DRUG USE FOR UNKNOWN INDICATION
     Dosage: 125MG DAILY ORAL
     Route: 048
     Dates: start: 20070808

REACTIONS (3)
  - DRUG INTERACTION [None]
  - HAEMATOCRIT INCREASED [None]
  - HAEMOCONCENTRATION [None]
